APPROVED DRUG PRODUCT: DARIFENACIN HYDROBROMIDE
Active Ingredient: DARIFENACIN HYDROBROMIDE
Strength: EQ 15MG BASE
Dosage Form/Route: TABLET, EXTENDED RELEASE;ORAL
Application: A205550 | Product #002
Applicant: JUBILANT GENERICS LTD
Approved: Oct 12, 2016 | RLD: No | RS: No | Type: DISCN